FAERS Safety Report 7642417-8 (Version None)
Quarter: 2011Q3

REPORT INFORMATION
  Report Type: 
  Country: None (occurrence: None)
  Receive Date: 20110728
  Receipt Date: 20101001
  Transmission Date: 20111222
  Serious: No
  Sender: FDA-Public Use
  Company Number: US-MYLANLABS-2010S1018165

PATIENT
  Age: 56 Year
  Sex: Female

DRUGS (2)
  1. LEVOTHYROXINE SODIUM [Suspect]
     Indication: HYPOTHYROIDISM
     Route: 048
     Dates: start: 20090101, end: 20100701
  2. LEVOTHYROXINE SODIUM [Suspect]
     Route: 048
     Dates: start: 20100801

REACTIONS (1)
  - BLOOD THYROID STIMULATING HORMONE INCREASED [None]
